FAERS Safety Report 18654481 (Version 3)
Quarter: 2021Q1

REPORT INFORMATION
  Report Type: Report from Study
  Country: BR (occurrence: BR)
  Receive Date: 20201223
  Receipt Date: 20210210
  Transmission Date: 20210419
  Serious: Yes (Life-Threatening)
  Sender: FDA-Public Use
  Company Number: BR-AMGEN-BRACT2020131974

PATIENT
  Age: 43 Year
  Sex: Male

DRUGS (6)
  1. PASURTA [Suspect]
     Active Substance: ERENUMAB
     Indication: MIGRAINE
     Dosage: UNK
     Route: 065
     Dates: start: 20200604
  2. PASURTA [Suspect]
     Active Substance: ERENUMAB
     Indication: HEADACHE
     Dosage: UNK
     Route: 065
     Dates: start: 202007
  3. PASURTA [Suspect]
     Active Substance: ERENUMAB
     Dosage: UNK
     Route: 065
     Dates: start: 202010
  4. PASURTA [Suspect]
     Active Substance: ERENUMAB
     Dosage: UNK
     Route: 065
     Dates: start: 202009
  5. PASURTA [Suspect]
     Active Substance: ERENUMAB
     Dosage: UNK
     Route: 065
     Dates: start: 202011
  6. PASURTA [Suspect]
     Active Substance: ERENUMAB
     Dosage: UNK
     Route: 058
     Dates: start: 202008

REACTIONS (2)
  - Hyperhidrosis [Not Recovered/Not Resolved]
  - Headache [Not Recovered/Not Resolved]

NARRATIVE: CASE EVENT DATE: 20200801
